FAERS Safety Report 7632269-4 (Version None)
Quarter: 2011Q3

REPORT INFORMATION
  Report Type: 
  Country: None (occurrence: None)
  Receive Date: 20110725
  Receipt Date: 20100712
  Transmission Date: 20111222
  Serious: No
  Sender: FDA-Public Use
  Company Number: US-BRISTOL-MYERS SQUIBB COMPANY-15187875

PATIENT
  Sex: Female

DRUGS (2)
  1. MACROBID [Interacting]
     Dates: start: 20100701
  2. COUMADIN [Suspect]

REACTIONS (2)
  - DRUG INTERACTION [None]
  - DIARRHOEA [None]
